FAERS Safety Report 11784647 (Version 1)
Quarter: 2015Q4

REPORT INFORMATION
  Report Type: Spontaneous
  Country: US (occurrence: US)
  Receive Date: 20151130
  Receipt Date: 20151130
  Transmission Date: 20160305
  Serious: No
  Sender: FDA-Public Use
  Company Number: US-ACTELION PHARMACEUTICALS US, INC.-A-US2015-127772

PATIENT
  Age: 53 Year
  Sex: Female

DRUGS (14)
  1. TRAMADOL. [Concomitant]
     Active Substance: TRAMADOL
  2. FLONASE [Concomitant]
     Active Substance: FLUTICASONE PROPIONATE
  3. MESTINON [Concomitant]
     Active Substance: PYRIDOSTIGMINE BROMIDE
  4. VENTAVIS [Suspect]
     Active Substance: ILOPROST
     Indication: PULMONARY ARTERIAL HYPERTENSION
     Dosage: 5 MCG, 6XDAY
     Route: 055
  5. PROTONIX [Concomitant]
     Active Substance: PANTOPRAZOLE SODIUM
  6. FIORICET [Concomitant]
     Active Substance: ACETAMINOPHEN\BUTALBITAL\CAFFEINE
  7. POTASSIUM [Concomitant]
     Active Substance: POTASSIUM
  8. RESTASIS [Concomitant]
     Active Substance: CYCLOSPORINE
  9. PHENERGAN [Concomitant]
     Active Substance: PROMETHAZINE HYDROCHLORIDE
  10. ADCIRCA [Concomitant]
     Active Substance: TADALAFIL
  11. CETIRIZINE [Concomitant]
     Active Substance: CETIRIZINE HYDROCHLORIDE
  12. ATIVAN [Concomitant]
     Active Substance: LORAZEPAM
  13. OPSUMIT [Suspect]
     Active Substance: MACITENTAN
     Indication: PULMONARY ARTERIAL HYPERTENSION
     Dosage: 10 MG, QD
     Route: 048
  14. BONIVA [Concomitant]
     Active Substance: IBANDRONATE SODIUM

REACTIONS (3)
  - Swelling face [Not Recovered/Not Resolved]
  - Drug dose omission [Recovered/Resolved]
  - Food allergy [Not Recovered/Not Resolved]
